FAERS Safety Report 6171135-0 (Version None)
Quarter: 2009Q2

REPORT INFORMATION
  Report Type: 
  Country: None (occurrence: None)
  Receive Date: 20090427
  Receipt Date: 20090415
  Transmission Date: 20091009
  Serious: Yes (Life-Threatening, Hospitalization)
  Sender: FDA-Public Use
  Company Number: 1000005862

PATIENT
  Age: 68 Year
  Sex: Male
  Weight: 75 kg

DRUGS (5)
  1. CITALOPRAM HYDROBROMIDE [Suspect]
     Indication: DEPRESSION
     Dosage: 30 MG, (30 MG, 1 IN 1 D), ORAL
     Route: 048
     Dates: start: 20081124
  2. ASPIRIN [Concomitant]
  3. DOXAZOSIN MESYLATE [Concomitant]
  4. LOSARTAN POSTASSIUM [Concomitant]
  5. METFORMIN HCL [Concomitant]

REACTIONS (1)
  - PARTIAL SEIZURES [None]
